FAERS Safety Report 21111577 (Version 1)
Quarter: 2022Q3

REPORT INFORMATION
  Report Type: Other
  Country: US (occurrence: None)
  Receive Date: 20220721
  Receipt Date: 20220721
  Transmission Date: 20221027
  Serious: Yes (Life-Threatening, Hospitalization, Other)
  Sender: FDA-Public Use
  Company Number: US-ROCHE-3142869

PATIENT
  Age: 32 Year
  Sex: Female

DRUGS (9)
  1. RITUXIMAB [Suspect]
     Active Substance: RITUXIMAB
     Indication: Respiratory failure
     Route: 065
  2. TACROLIMUS [Suspect]
     Active Substance: TACROLIMUS
     Indication: Dermatomyositis
     Route: 065
  3. TACROLIMUS [Suspect]
     Active Substance: TACROLIMUS
     Indication: Respiratory failure
  4. TOFACITINIB [Suspect]
     Active Substance: TOFACITINIB
     Indication: Respiratory failure
     Route: 065
  5. PREDNISONE [Suspect]
     Active Substance: PREDNISONE
     Indication: Dermatomyositis
     Dosage: 40-120 MG DAILY, PULSE-DOSE
     Route: 065
  6. IBUPROFEN [Concomitant]
     Active Substance: IBUPROFEN
  7. SULFAMETHOXAZOLE\TRIMETHOPRIM [Concomitant]
     Active Substance: SULFAMETHOXAZOLE\TRIMETHOPRIM
     Indication: Pneumocystis jirovecii pneumonia
     Route: 042
  8. PRIMAQUINE [Concomitant]
     Active Substance: PRIMAQUINE
     Indication: Pneumocystis jirovecii pneumonia
  9. CLINDAMYCIN [Concomitant]
     Active Substance: CLINDAMYCIN
     Indication: Pneumocystis jirovecii pneumonia

REACTIONS (2)
  - Respiratory failure [Unknown]
  - Enterococcal bacteraemia [Unknown]
